FAERS Safety Report 10611254 (Version 9)
Quarter: 2016Q4

REPORT INFORMATION
  Report Type: Spontaneous
  Country: US (occurrence: US)
  Receive Date: 20141126
  Receipt Date: 20161212
  Transmission Date: 20170206
  Serious: Yes (Hospitalization, Other)
  Sender: FDA-Public Use
  Company Number: US-JNJFOC-20141115915

PATIENT
  Sex: Female

DRUGS (4)
  1. IMBRUVICA [Suspect]
     Active Substance: IBRUTINIB
     Indication: CHRONIC LYMPHOCYTIC LEUKAEMIA
     Route: 048
     Dates: start: 201408
  2. KLONOPIN [Concomitant]
     Active Substance: CLONAZEPAM
  3. IMBRUVICA [Suspect]
     Active Substance: IBRUTINIB
     Indication: B-CELL SMALL LYMPHOCYTIC LYMPHOMA
     Route: 048
     Dates: start: 201408
  4. GABAPENTIN. [Concomitant]
     Active Substance: GABAPENTIN

REACTIONS (10)
  - Fall [Recovering/Resolving]
  - Dehydration [Recovered/Resolved]
  - Contusion [Unknown]
  - Transient ischaemic attack [Recovered/Resolved]
  - Urinary tract infection [Not Recovered/Not Resolved]
  - Hip fracture [Recovering/Resolving]
  - Spinal fracture [Recovering/Resolving]
  - Pelvic fracture [Recovering/Resolving]
  - Blood blister [Not Recovered/Not Resolved]
  - Erythema [Unknown]

NARRATIVE: CASE EVENT DATE: 2014
